FAERS Safety Report 11058024 (Version 1)
Quarter: 2015Q2

REPORT INFORMATION
  Report Type: Spontaneous
  Country: GB (occurrence: GB)
  Receive Date: 20150423
  Receipt Date: 20150423
  Transmission Date: 20150821
  Serious: Yes (Death, Hospitalization, Other)
  Sender: FDA-Public Use
  Company Number: GB-ACCORD-030048

PATIENT
  Age: 70 Year
  Sex: Female
  Weight: 63.5 kg

DRUGS (10)
  1. GLYCERYL TRINITRATE [Concomitant]
     Active Substance: NITROGLYCERIN
  2. LEVOTHYROXINE/LEVOTHYROXINE SODIUM [Concomitant]
  3. ATENOLOL/ATENOLOL HYDROCHLORIDE [Concomitant]
  4. LANSOPRAZOLE. [Concomitant]
     Active Substance: LANSOPRAZOLE
  5. ALLOPURINOL/ALLOPURINOL SODIUM [Suspect]
     Active Substance: ALLOPURINOL SODIUM
     Indication: GOUT
     Route: 048
     Dates: start: 20141128, end: 20150102
  6. PARACETAMOL [Concomitant]
     Active Substance: ACETAMINOPHEN
  7. SPIRONOLACTONE. [Concomitant]
     Active Substance: SPIRONOLACTONE
  8. VENTOLIN [Concomitant]
     Active Substance: ALBUTEROL SULFATE
  9. FUROSEMIDE. [Concomitant]
     Active Substance: FUROSEMIDE
  10. QVAR [Concomitant]
     Active Substance: BECLOMETHASONE DIPROPIONATE

REACTIONS (15)
  - Upper gastrointestinal haemorrhage [Unknown]
  - Oedema peripheral [Unknown]
  - Skin ulcer [Unknown]
  - Gastritis erosive [Unknown]
  - Haemodynamic instability [Unknown]
  - Mucosal ulceration [Unknown]
  - Ulcer haemorrhage [Not Recovered/Not Resolved]
  - Renal impairment [Unknown]
  - Drug reaction with eosinophilia and systemic symptoms [Fatal]
  - Rash pruritic [Unknown]
  - Blister rupture [Unknown]
  - Thrombocytopenia [Unknown]
  - Infected skin ulcer [Unknown]
  - Pneumonia [Unknown]
  - Epistaxis [Not Recovered/Not Resolved]

NARRATIVE: CASE EVENT DATE: 20141225
